FAERS Safety Report 12777503 (Version 1)
Quarter: 2016Q3

REPORT INFORMATION
  Report Type: Spontaneous
  Country: US (occurrence: US)
  Receive Date: 20160924
  Receipt Date: 20160924
  Transmission Date: 20161109
  Serious: No
  Sender: FDA-Public Use
  Company Number: US-TEVA-599897USA

PATIENT
  Sex: Female

DRUGS (1)
  1. CLONAZEPAM. [Suspect]
     Active Substance: CLONAZEPAM
     Indication: INSOMNIA
     Route: 065

REACTIONS (6)
  - Weight decreased [Unknown]
  - Confusional state [Unknown]
  - Anxiety [Unknown]
  - Product use issue [Unknown]
  - Decreased appetite [Unknown]
  - Flatulence [Unknown]
